FAERS Safety Report 7919258-7 (Version None)
Quarter: 2011Q4

REPORT INFORMATION
  Report Type: 
  Country: None (occurrence: None)
  Receive Date: 20111114
  Receipt Date: 20111104
  Transmission Date: 20120403
  Serious: Yes (Other)
  Sender: FDA-Public Use
  Company Number: DKLU1074016

PATIENT
  Age: 6 Year
  Sex: Female

DRUGS (2)
  1. FENTANYL [Suspect]
     Indication: SEDATIVE THERAPY
     Dosage: 1 UG/KG MICROGRAM(S)/KILOGRAM
  2. NEMBUTAL [Suspect]
     Indication: SEDATIVE THERAPY
     Dosage: 6 MG/KG MILLIGRAM(S)/KILOGRAM

REACTIONS (6)
  - OXYGEN SATURATION DECREASED [None]
  - DEVICE DISLOCATION [None]
  - SNORING [None]
  - HYPOXIA [None]
  - VOMITING [None]
  - HYPOVENTILATION [None]
